FAERS Safety Report 5984197-8 (Version None)
Quarter: 2008Q4

REPORT INFORMATION
  Report Type: 
  Country: None (occurrence: None)
  Receive Date: 20081208
  Receipt Date: 20081201
  Transmission Date: 20090506
  Serious: Yes (Other)
  Sender: FDA-Public Use
  Company Number: CH-WYE-G02283008

PATIENT
  Age: 48 Year
  Sex: Male
  Weight: 99 kg

DRUGS (9)
  1. EFFEXOR [Suspect]
     Indication: DEPRESSION
     Route: 048
     Dates: start: 20080101, end: 20080101
  2. EFFEXOR [Suspect]
     Route: 048
     Dates: start: 20080101
  3. RITALIN [Concomitant]
     Dates: start: 20080701
  4. APROVEL [Concomitant]
     Dates: start: 20080701
  5. QUILONORM [Concomitant]
     Dates: start: 20080701
  6. PROPRANOLOL HYDROCHLORIDE [Concomitant]
     Dates: start: 20080701
  7. RISPERDAL [Concomitant]
     Dates: start: 20080701
  8. HALDOL [Concomitant]
     Dates: start: 20080701, end: 20080101
  9. HALDOL [Concomitant]
     Route: 048

REACTIONS (1)
  - ELECTROCARDIOGRAM T WAVE INVERSION [None]
